FAERS Safety Report 11357258 (Version 1)
Quarter: 2015Q3

REPORT INFORMATION
  Report Type: Spontaneous
  Country: US (occurrence: US)
  Receive Date: 20150803
  Receipt Date: 20150803
  Transmission Date: 20151125
  Serious: Yes (Other)
  Sender: FDA-Public Use
  Company Number: US-ELI_LILLY_AND_COMPANY-US201311003215

PATIENT
  Age: 6 Year
  Sex: Male

DRUGS (4)
  1. STRATTERA [Suspect]
     Active Substance: ATOMOXETINE HYDROCHLORIDE
     Indication: PRODUCT USED FOR UNKNOWN INDICATION
     Dosage: 10 MG, UNK
     Route: 065
     Dates: start: 201307
  2. STRATTERA [Suspect]
     Active Substance: ATOMOXETINE HYDROCHLORIDE
     Dosage: 40 MG, UNK
     Route: 065
     Dates: start: 201309
  3. STRATTERA [Suspect]
     Active Substance: ATOMOXETINE HYDROCHLORIDE
     Dosage: 20 MG, UNK
     Route: 065
  4. STRATTERA [Suspect]
     Active Substance: ATOMOXETINE HYDROCHLORIDE
     Dosage: 25 MG, UNK
     Route: 065
     Dates: start: 201308

REACTIONS (1)
  - Suicidal ideation [Unknown]
